FAERS Safety Report 6864215-5 (Version None)
Quarter: 2010Q3

REPORT INFORMATION
  Report Type: 
  Country: None (occurrence: None)
  Receive Date: 20100721
  Receipt Date: 20080318
  Transmission Date: 20110219
  Serious: No
  Sender: FDA-Public Use
  Company Number: US-PFIZER INC-2008025866

PATIENT
  Sex: Male

DRUGS (4)
  1. CHANTIX [Suspect]
  2. PROPRANOLOL [Concomitant]
  3. COZAAR [Concomitant]
  4. SIMVASTATIN [Concomitant]

REACTIONS (2)
  - DYSSTASIA [None]
  - TREMOR [None]
